FAERS Safety Report 9995513 (Version 1)
Quarter: 2014Q1

REPORT INFORMATION
  Report Type: Spontaneous
  Country: US (occurrence: None)
  Receive Date: 20140307
  Receipt Date: 20140307
  Transmission Date: 20141002
  Serious: Yes (Hospitalization, Disabling)
  Sender: FDA-Public Use
  Company Number: None

PATIENT
  Age: 62 Year
  Sex: Male

DRUGS (7)
  1. LATUDA [Suspect]
     Indication: BIPOLAR DISORDER
     Dosage: BEDTIME, BY MOUTH, 1 PILL
     Dates: start: 20130920, end: 20140123
  2. DEPAKOTE [Concomitant]
  3. INSULIN [Concomitant]
  4. MAGNESIUM [Concomitant]
  5. PANTOPRAZOLE [Concomitant]
  6. SPIRONOLACTONE [Concomitant]
  7. FENOFIBRATE [Concomitant]

REACTIONS (10)
  - Confusional state [None]
  - Sensation of heaviness [None]
  - Gait disturbance [None]
  - Muscle rigidity [None]
  - Tremor [None]
  - Bradykinesia [None]
  - Masked facies [None]
  - Parkinsonism [None]
  - Infection [None]
  - Pulmonary mass [None]
